FAERS Safety Report 9404238 (Version 2)
Quarter: 2013Q4

REPORT INFORMATION
  Report Type: Spontaneous
  Country: US (occurrence: US)
  Receive Date: 20130717
  Receipt Date: 20131018
  Transmission Date: 20140711
  Serious: Yes (Other)
  Sender: FDA-Public Use
  Company Number: US-BAYER-2013-084340

PATIENT
  Age: 28 Year
  Sex: Female
  Weight: 58.05 kg

DRUGS (2)
  1. MIRENA [Suspect]
     Indication: CONTRACEPTION
     Dosage: 20 MCG/24HR, CONT
     Route: 015
     Dates: start: 2008, end: 20121130
  2. CORGARD [Concomitant]
     Indication: SMEAR CERVIX ABNORMAL
     Dosage: 40 MG, EVERY MORNING

REACTIONS (11)
  - Uterine perforation [None]
  - Genital haemorrhage [None]
  - Device difficult to use [None]
  - Medical device complication [None]
  - Abdominal pain [None]
  - Injury [None]
  - Emotional distress [None]
  - Pain [None]
  - Anxiety [None]
  - Scar [None]
  - Depression [None]
